FAERS Safety Report 7609597-1 (Version None)
Quarter: 2011Q3

REPORT INFORMATION
  Report Type: 
  Country: None (occurrence: None)
  Receive Date: 20110714
  Receipt Date: 20110712
  Transmission Date: 20111222
  Serious: Yes (Life-Threatening, Hospitalization)
  Sender: FDA-Public Use
  Company Number: ES-PFIZER INC-2011077686

PATIENT
  Age: 81 Year
  Sex: Male

DRUGS (6)
  1. FUROSEMIDE [Concomitant]
     Indication: HYPERTENSION
     Dosage: 40 MG, 1X/DAY
     Route: 048
  2. DILTIAZEM HYDROCHLORIDE [Suspect]
     Indication: ATRIAL FIBRILLATION
     Dosage: 120 MG, 1X/DAY
     Route: 048
     Dates: end: 20100109
  3. PARAPRES [Concomitant]
     Indication: HYPERTENSION
     Dosage: 32 MG, 1X/DAY
     Route: 048
     Dates: start: 20091210
  4. ALLOPURINOL [Concomitant]
     Dosage: 300 MG, 1X/DAY
     Route: 048
  5. AMIODARONE HCL [Interacting]
     Indication: ATRIAL FIBRILLATION
     Dosage: 200 MG, 1X/DAY
     Route: 048
     Dates: start: 20090219, end: 20100109
  6. METFORMIN [Concomitant]
     Indication: DIABETES MELLITUS
     Dosage: 2.55 G, 1X/DAY
     Route: 048

REACTIONS (2)
  - DRUG INTERACTION [None]
  - ATRIOVENTRICULAR BLOCK [None]
